FAERS Safety Report 13666675 (Version 1)
Quarter: 2017Q2

REPORT INFORMATION
  Report Type: Spontaneous
  Country: US (occurrence: US)
  Receive Date: 20170619
  Receipt Date: 20170619
  Transmission Date: 20170830
  Serious: No
  Sender: FDA-Public Use
  Company Number: US-ROCHE-1419685

PATIENT
  Age: 64 Year
  Sex: Female

DRUGS (2)
  1. XELODA [Suspect]
     Active Substance: CAPECITABINE
     Dosage: QPM
     Route: 048
     Dates: start: 20140510, end: 20140520
  2. XELODA [Suspect]
     Active Substance: CAPECITABINE
     Indication: SQUAMOUS CELL CARCINOMA
     Dosage: QAM
     Route: 048
     Dates: start: 20140510, end: 20140520

REACTIONS (1)
  - Blister [Unknown]

NARRATIVE: CASE EVENT DATE: 20140601
